FAERS Safety Report 16020033 (Version 1)
Quarter: 2019Q1

REPORT INFORMATION
  Report Type: Spontaneous
  Country: JP (occurrence: JP)
  Receive Date: 20190228
  Receipt Date: 20190228
  Transmission Date: 20190418
  Serious: Yes (Hospitalization)
  Sender: FDA-Public Use
  Company Number: JP-ASTRAZENECA-2019SE32140

PATIENT
  Age: 82 Year
  Sex: Female
  Weight: 144 kg

DRUGS (5)
  1. GATIFLO [Concomitant]
     Active Substance: GATIFLOXACIN
     Route: 047
  2. FML [Concomitant]
     Active Substance: FLUOROMETHOLONE
     Route: 047
  3. NIZATIDINE. [Concomitant]
     Active Substance: NIZATIDINE
     Route: 065
  4. TAGRISSO [Suspect]
     Active Substance: OSIMERTINIB
     Indication: NON-SMALL CELL LUNG CANCER
     Route: 048
     Dates: start: 20170613
  5. SULPIRIDE [Concomitant]
     Active Substance: SULPIRIDE
     Route: 065

REACTIONS (2)
  - Palpitations [Unknown]
  - Lung disorder [Recovering/Resolving]

NARRATIVE: CASE EVENT DATE: 20190116
